FAERS Safety Report 8538886-1 (Version None)
Quarter: 2012Q3

REPORT INFORMATION
  Report Type: 
  Country: None (occurrence: None)
  Receive Date: 20120726
  Receipt Date: 20120716
  Transmission Date: 20120928
  Serious: Yes (Death, Other)
  Sender: FDA-Public Use
  Company Number: US-PFIZER INC-2012177434

PATIENT

DRUGS (3)
  1. CISPLATIN [Suspect]
     Indication: OESOPHAGEAL CARCINOMA
     Dosage: UNK
     Route: 065
  2. IRINOTECAN HCL [Suspect]
     Indication: OESOPHAGEAL CARCINOMA
     Dosage: UNK
     Route: 065
  3. CETUXIMAB [Suspect]
     Indication: OESOPHAGEAL CARCINOMA
     Route: 065

REACTIONS (2)
  - NEUTROPENIA [None]
  - SEPSIS [None]
